FAERS Safety Report 17083601 (Version 4)
Quarter: 2020Q1

REPORT INFORMATION
  Report Type: Spontaneous
  Country: US (occurrence: US)
  Receive Date: 20191127
  Receipt Date: 20200131
  Transmission Date: 20200409
  Serious: No
  Sender: FDA-Public Use
  Company Number: US-BIOGEN-2019BI00809780

PATIENT
  Sex: Female

DRUGS (6)
  1. TYSABRI [Suspect]
     Active Substance: NATALIZUMAB
     Indication: MULTIPLE SCLEROSIS
     Dosage: INFUSED OVER 1 HOUR
     Route: 042
     Dates: start: 20191029
  2. TECFIDERA [Suspect]
     Active Substance: DIMETHYL FUMARATE
     Indication: MULTIPLE SCLEROSIS
     Dosage: STARTING DOSE
     Route: 048
     Dates: start: 201506
  3. TECFIDERA [Suspect]
     Active Substance: DIMETHYL FUMARATE
     Dosage: MAINTENANCE DOSE
     Route: 048
  4. TYSABRI [Suspect]
     Active Substance: NATALIZUMAB
     Dosage: INFUSED OVER 1 HOUR
     Route: 042
  5. TECFIDERA [Suspect]
     Active Substance: DIMETHYL FUMARATE
     Route: 065
     Dates: start: 20150311, end: 20151231
  6. TYSABRI [Suspect]
     Active Substance: NATALIZUMAB
     Dosage: INFUSION OVER ONE HOUR
     Route: 042
     Dates: start: 20150311, end: 20151231

REACTIONS (14)
  - Visual impairment [Not Recovered/Not Resolved]
  - Migraine [Unknown]
  - Balance disorder [Unknown]
  - Contusion [Not Recovered/Not Resolved]
  - Amnesia [Unknown]
  - Headache [Unknown]
  - Fatigue [Unknown]
  - Nausea [Not Recovered/Not Resolved]
  - Vision blurred [Unknown]
  - Hypoaesthesia [Not Recovered/Not Resolved]
  - Nasopharyngitis [Unknown]
  - Panic reaction [Not Recovered/Not Resolved]
  - Stress [Unknown]
  - Fall [Recovered/Resolved]

NARRATIVE: CASE EVENT DATE: 2015
